FAERS Safety Report 18646805 (Version 1)
Quarter: 2020Q4

REPORT INFORMATION
  Report Type: Spontaneous
  Country: US (occurrence: US)
  Receive Date: 20201222
  Receipt Date: 20201222
  Transmission Date: 20210114
  Serious: No
  Sender: FDA-Public Use
  Company Number: US-TELIGENT, INC-20200400008

PATIENT
  Sex: Female

DRUGS (2)
  1. ANASTROZOLE ZYDUS [Suspect]
     Active Substance: ANASTROZOLE
     Indication: BREAST CANCER
     Dosage: 1 MILLIGRAM, QD
     Route: 048
     Dates: start: 20191213
  2. ZANTAC [Suspect]
     Active Substance: RANITIDINE HYDROCHLORIDE

REACTIONS (7)
  - Hypersensitivity [Not Recovered/Not Resolved]
  - Fatigue [Unknown]
  - Vision blurred [Unknown]
  - Tachycardia [Unknown]
  - Rash [Not Recovered/Not Resolved]
  - Dizziness [Unknown]
  - Ocular hyperaemia [Not Recovered/Not Resolved]

NARRATIVE: CASE EVENT DATE: 201912
